FAERS Safety Report 6602281-2 (Version None)
Quarter: 2010Q1

REPORT INFORMATION
  Report Type: 
  Country: None (occurrence: None)
  Receive Date: 20100225
  Receipt Date: 20100216
  Transmission Date: 20100710
  Serious: Yes (Hospitalization)
  Sender: FDA-Public Use
  Company Number: IT-WATSON-2010-01950

PATIENT
  Age: 50 Year
  Sex: Male

DRUGS (2)
  1. NANDROLONE DECANOATE (WATSON LABORATORIES) [Suspect]
     Indication: DRUG ABUSE
     Dosage: UNK
  2. EPOGEN [Suspect]
     Indication: DRUG ABUSE
     Dosage: UNK

REACTIONS (4)
  - CARDIOGENIC SHOCK [None]
  - DRUG ABUSE [None]
  - MYOCARDIAL INFARCTION [None]
  - VENTRICULAR SEPTAL DEFECT ACQUIRED [None]
